FAERS Safety Report 16337435 (Version 1)
Quarter: 2019Q2

REPORT INFORMATION
  Report Type: Spontaneous
  Country: CA (occurrence: CA)
  Receive Date: 20190521
  Receipt Date: 20190521
  Transmission Date: 20190711
  Serious: Yes (Other)
  Sender: FDA-Public Use
  Company Number: CA-TEVA-2019-CA-1050309

PATIENT
  Age: 19 Year
  Sex: Male
  Weight: 93 kg

DRUGS (16)
  1. ACETAZOLAMIDE. [Concomitant]
     Active Substance: ACETAZOLAMIDE
  2. FUROSEMIDE. [Concomitant]
     Active Substance: FUROSEMIDE
  3. LEVETIRACETAM. [Concomitant]
     Active Substance: LEVETIRACETAM
  4. HYDROMORPHONE [Suspect]
     Active Substance: HYDROMORPHONE
     Route: 042
  5. MANNITOL. [Concomitant]
     Active Substance: MANNITOL
     Dosage: SOLUTION INTRAVENOUS
  6. PANTOPRAZOLE [Concomitant]
     Active Substance: PANTOPRAZOLE
  7. DEXAMETHASONE. [Concomitant]
     Active Substance: DEXAMETHASONE
  8. LORAZEPAM. [Concomitant]
     Active Substance: LORAZEPAM
  9. QUETIAPINE. [Concomitant]
     Active Substance: QUETIAPINE
  10. BACLOFEN. [Concomitant]
     Active Substance: BACLOFEN
  11. MICAFUNGINE [Concomitant]
     Active Substance: MICAFUNGIN
  12. TRIMETHOPRIM. [Concomitant]
     Active Substance: TRIMETHOPRIM
  13. FENTANYL. [Suspect]
     Active Substance: FENTANYL
     Route: 062
  14. HYDROMORPHONE [Suspect]
     Active Substance: HYDROMORPHONE
     Route: 042
  15. PREGABALIN. [Concomitant]
     Active Substance: PREGABALIN
  16. VALACYCLOVIR [Concomitant]
     Active Substance: VALACYCLOVIR HYDROCHLORIDE

REACTIONS (1)
  - Allodynia [Recovered/Resolved]
